FAERS Safety Report 8889445 (Version 1)
Quarter: 2012Q4

REPORT INFORMATION
  Report Type: Spontaneous
  Country: US (occurrence: None)
  Receive Date: 20121102
  Receipt Date: 20121102
  Transmission Date: 20130627
  Serious: Yes (Hospitalization)
  Sender: FDA-Public Use
  Company Number: None

PATIENT
  Age: 85 Year
  Sex: Male
  Weight: 104.78 kg

DRUGS (12)
  1. GEMZAR [Suspect]
     Indication: CHOLANGIOCARCINOMA
     Route: 042
     Dates: start: 20121011
  2. GEMZAR [Suspect]
     Indication: METASTATIC CARCINOMA
     Route: 042
     Dates: start: 20121011
  3. GEMZAR [Suspect]
     Indication: CHOLANGIOCARCINOMA
     Dates: start: 20121024
  4. GEMZAR [Suspect]
     Indication: METASTATIC CARCINOMA
     Dates: start: 20121024
  5. OXALIPLATIN [Suspect]
     Indication: CHOLANGIOCARCINOMA
     Route: 042
     Dates: start: 20121011
  6. OXALIPLATIN [Suspect]
     Indication: METASTATIC CARCINOMA
     Route: 042
     Dates: start: 20121011
  7. ERLOTINIB [Suspect]
     Indication: CHOLANGIOCARCINOMA
  8. ERLOTINIB [Suspect]
     Indication: METASTATIC CARCINOMA
  9. ONDANSETRON [Concomitant]
  10. PROCHLORPERAZINE [Concomitant]
  11. PHENERGAN TOPICAL GWEL [Concomitant]
  12. LORAZEPAM [Concomitant]

REACTIONS (5)
  - Fatigue [None]
  - Nausea [None]
  - Dermatitis acneiform [None]
  - Rash [None]
  - Pyrexia [None]
